FAERS Safety Report 25213504 (Version 1)
Quarter: 2025Q2

REPORT INFORMATION
  Report Type: Spontaneous
  Country: US (occurrence: None)
  Receive Date: 20250417
  Receipt Date: 20250417
  Transmission Date: 20250716
  Serious: Yes (Life-Threatening, Hospitalization)
  Sender: FDA-CTU
  Company Number: None

PATIENT
  Age: 51 Year
  Sex: Female
  Weight: 77.4 kg

DRUGS (15)
  1. OZEMPIC [Suspect]
     Active Substance: SEMAGLUTIDE
     Indication: Diabetes mellitus
     Dates: start: 20240404, end: 20250120
  2. Busperone [Concomitant]
  3. CLONAZEPAM [Concomitant]
     Active Substance: CLONAZEPAM
  4. escitalipram [Concomitant]
  5. GABAPENTIN [Concomitant]
     Active Substance: GABAPENTIN
  6. LAMOTRIGINE [Concomitant]
     Active Substance: LAMOTRIGINE
  7. LURASIDONE [Concomitant]
     Active Substance: LURASIDONE
  8. TOPIRAMATE [Concomitant]
     Active Substance: TOPIRAMATE
  9. STIOLTO RESPIMAT [Concomitant]
     Active Substance: OLODATEROL HYDROCHLORIDE\TIOTROPIUM BROMIDE MONOHYDRATE
  10. abuterol [Concomitant]
  11. LUNESTA [Concomitant]
     Active Substance: ESZOPICLONE
  12. SUMATRIPTAN [Concomitant]
     Active Substance: SUMATRIPTAN
  13. Bariatric vitamins [Concomitant]
  14. CALCIUM [Concomitant]
     Active Substance: CALCIUM
  15. PROBIOTICS NOS [Concomitant]
     Active Substance: PROBIOTICS NOS

REACTIONS (3)
  - Intestinal obstruction [None]
  - Gangrene [None]
  - Gastrointestinal motility disorder [None]

NARRATIVE: CASE EVENT DATE: 20250124
